FAERS Safety Report 9353759 (Version 2)
Quarter: 2013Q2

REPORT INFORMATION
  Report Type: Spontaneous
  Country: BR (occurrence: BR)
  Receive Date: 20130618
  Receipt Date: 20130625
  Transmission Date: 20140414
  Serious: Yes (Other)
  Sender: FDA-Public Use
  Company Number: BR-ASTRAZENECA-2013SE42004

PATIENT
  Age: 64 Year
  Sex: Male

DRUGS (9)
  1. ATENOLOL [Suspect]
     Indication: HYPERTENSION
     Route: 065
     Dates: start: 201305, end: 2013
  2. ATENOLOL [Suspect]
     Indication: HYPERTENSION
     Route: 065
     Dates: start: 2013, end: 20130610
  3. ENALAPRIL [Suspect]
     Indication: HYPERTENSION
     Route: 065
     Dates: start: 201305
  4. XALACOM [Concomitant]
     Indication: GLAUCOMA
  5. ALPHAGAN Z [Concomitant]
     Indication: GLAUCOMA
  6. CAPTOPRIL [Concomitant]
     Dosage: UNKNOWN, THREE TIMES A DAY
     Dates: start: 2012, end: 201305
  7. ASA [Concomitant]
     Indication: ISCHAEMIC HEART DISEASE PROPHYLAXIS
  8. ELEVA [Concomitant]
     Indication: ERECTILE DYSFUNCTION
  9. SIMVASTATIN [Concomitant]

REACTIONS (5)
  - Blood pressure increased [Recovered/Resolved]
  - Chills [Not Recovered/Not Resolved]
  - Malaise [Not Recovered/Not Resolved]
  - Drug ineffective [Unknown]
  - Off label use [Recovered/Resolved]
